FAERS Safety Report 9332376 (Version 3)
Quarter: 2013Q4

REPORT INFORMATION
  Report Type: Spontaneous
  Country: JP (occurrence: JP)
  Receive Date: 20130606
  Receipt Date: 20131115
  Transmission Date: 20140711
  Serious: Yes (Death, Life-Threatening, Other)
  Sender: FDA-Public Use
  Company Number: PHHY2013JP056969

PATIENT
  Age: 66 Year
  Sex: Female
  Weight: 39 kg

DRUGS (7)
  1. NEORAL [Suspect]
     Indication: RENAL TRANSPLANT
     Dosage: 200 MG, DAILY
     Route: 048
     Dates: start: 20080330
  2. NEORAL [Suspect]
     Dosage: 100 MG
  3. PREDNISOLONE [Suspect]
     Indication: RENAL TRANSPLANT
     Dosage: 5 MG, UNK
  4. GEMZAR [Suspect]
     Indication: PANCREATIC CARCINOMA
     Dosage: 1245 MG, FOR 3 WEEKS
     Route: 041
     Dates: start: 2010
  5. MIZORIBINE [Suspect]
     Indication: RENAL TRANSPLANT
     Dosage: 200 MG, DAILY
     Route: 048
     Dates: start: 20080402
  6. MIZORIBINE [Suspect]
     Dosage: 100 DAILY
  7. RADIATION [Concomitant]

REACTIONS (5)
  - Pancreatic carcinoma [Fatal]
  - Bone marrow failure [Unknown]
  - General physical health deterioration [Unknown]
  - Renal impairment [Unknown]
  - Blood creatinine increased [Unknown]
